FAERS Safety Report 12634745 (Version 1)
Quarter: 2016Q3

REPORT INFORMATION
  Report Type: Spontaneous
  Country: IT (occurrence: IT)
  Receive Date: 20160808
  Receipt Date: 20160808
  Transmission Date: 20161109
  Serious: Yes (Life-Threatening)
  Sender: FDA-Public Use
  Company Number: IT-TEVA-682485ACC

PATIENT
  Age: 33 Year
  Sex: Female

DRUGS (4)
  1. VALPROATE SODIUM. [Suspect]
     Active Substance: VALPROATE SODIUM
     Indication: BIPOLAR DISORDER
  2. SERTRALINE HYDROCHLORIDE. [Suspect]
     Active Substance: SERTRALINE HYDROCHLORIDE
     Indication: BIPOLAR DISORDER
  3. ALPRAZOLAM. [Suspect]
     Active Substance: ALPRAZOLAM
     Indication: BIPOLAR DISORDER
  4. BROTIZOLAM [Suspect]
     Active Substance: BROTIZOLAM
     Indication: BIPOLAR DISORDER

REACTIONS (3)
  - Suicide attempt [Recovered/Resolved with Sequelae]
  - Drug abuse [Recovered/Resolved with Sequelae]
  - Poisoning [Recovered/Resolved with Sequelae]

NARRATIVE: CASE EVENT DATE: 20160708
